FAERS Safety Report 21810072 (Version 1)
Quarter: 2023Q1

REPORT INFORMATION
  Report Type: Spontaneous
  Country: GB (occurrence: GB)
  Receive Date: 20230103
  Receipt Date: 20230103
  Transmission Date: 20230418
  Serious: Yes (Other)
  Sender: FDA-Public Use
  Company Number: None

PATIENT
  Age: 68 Year
  Sex: Male
  Weight: 106 kg

DRUGS (9)
  1. ATORVASTATIN [Suspect]
     Active Substance: ATORVASTATIN
     Indication: Product used for unknown indication
     Dates: start: 20220825
  2. ALENDRONIC ACID [Concomitant]
     Active Substance: ALENDRONIC ACID
     Dates: start: 20221214
  3. CALCEOS [Concomitant]
     Active Substance: CALCIUM CARBONATE\CHOLECALCIFEROL
     Dates: start: 20221214
  4. BETAMETHASONE\CALCIPOTRIENE [Concomitant]
     Active Substance: BETAMETHASONE\CALCIPOTRIENE
     Dosage: AS DIRECTED BY DERMATOLOGY
     Dates: start: 20220729
  5. HYDROMOL CREAM [Concomitant]
     Dosage: USE AS DIRECTED
     Dates: start: 20220729
  6. POLYETHYLENE GLYCOL 3350\POTASSIUM CHLORIDE\SODIUM BICARBONATE\SODIUM [Concomitant]
     Active Substance: POLYETHYLENE GLYCOL 3350\POTASSIUM CHLORIDE\SODIUM BICARBONATE\SODIUM CHLORIDE
     Dosage: TAKE ONE TO THREE SACHETS DAILY AS REQUIRED
     Dates: start: 20220729
  7. METFORMIN [Concomitant]
     Active Substance: METFORMIN HYDROCHLORIDE
     Dosage: WITH YOUR MAIN MEAL
     Dates: start: 20220729
  8. PREDNISOLONE [Concomitant]
     Active Substance: PREDNISOLONE
     Dosage: FOR TWO WEEKS THEN 14MG ONCE A ...
     Dates: start: 20221214
  9. RAMIPRIL [Concomitant]
     Active Substance: RAMIPRIL
     Dates: start: 20220729

REACTIONS (2)
  - Polymyalgia rheumatica [Unknown]
  - Myalgia [Unknown]

NARRATIVE: CASE EVENT DATE: 20220825
